FAERS Safety Report 15377678 (Version 4)
Quarter: 2018Q4

REPORT INFORMATION
  Report Type: Spontaneous
  Country: US (occurrence: US)
  Receive Date: 20180913
  Receipt Date: 20181023
  Transmission Date: 20190204
  Serious: Yes (Hospitalization)
  Sender: FDA-Public Use
  Company Number: US-ASTRAZENECA-2018SF16279

PATIENT
  Age: 12959 Day
  Sex: Female
  Weight: 36 kg

DRUGS (26)
  1. FASENRA [Suspect]
     Active Substance: BENRALIZUMAB
     Indication: ASTHMA
     Dosage: 30.0MG ONCE/SINGLE ADMINISTRATION
     Route: 058
     Dates: start: 20180906, end: 20180906
  2. IPRATROPIUM-ALBUTEROL [Concomitant]
     Active Substance: ALBUTEROL\IPRATROPIUM
     Dosage: 3 ML BY INHALATION ONE TIME ONLY
     Route: 055
     Dates: start: 20180906, end: 20180906
  3. COZAAR [Concomitant]
     Active Substance: LOSARTAN POTASSIUM
     Route: 048
     Dates: start: 20180822
  4. MAGNESIUM SULFATE. [Concomitant]
     Active Substance: MAGNESIUM SULFATE
     Dosage: 50 ML BY LNTRAVENOUS ROUTE ONE TIME ONLY
     Route: 042
  5. EPINEPHRINE. [Concomitant]
     Active Substance: EPINEPHRINE
     Dosage: ONE TIME ONLY FOR 1 DOSE
     Route: 030
     Dates: start: 20180822, end: 20180822
  6. SINGULAIR [Concomitant]
     Active Substance: MONTELUKAST SODIUM
     Route: 048
     Dates: start: 20180622
  7. SOLU-MEDROL [Concomitant]
     Active Substance: METHYLPREDNISOLONE SODIUM SUCCINATE
     Route: 042
     Dates: start: 20180906, end: 20180906
  8. CYMBALTA [Concomitant]
     Active Substance: DULOXETINE HYDROCHLORIDE
     Route: 048
     Dates: start: 20180522
  9. LAMICTAL [Concomitant]
     Active Substance: LAMOTRIGINE
     Dosage: AT BED TIME
     Route: 048
     Dates: start: 20180514
  10. BENADRYL [Concomitant]
     Active Substance: DIPHENHYDRAMINE HYDROCHLORIDE
     Indication: PRURITUS
     Dosage: 50 MG BY MOUTH EVELY 6 HOURS AS NEEDED
     Route: 048
  11. MINIPRESS [Concomitant]
     Active Substance: PRAZOSIN HYDROCHLORIDE
     Route: 048
     Dates: start: 20180712
  12. FLONASE [Concomitant]
     Active Substance: FLUTICASONE PROPIONATE
     Dosage: 2 SPRAYS BY BOTH NOSTRILS ROUTE EVEL)^ DAY??? BOTH NOSTRILS
     Dates: start: 20180212
  13. PRILOSEC [Suspect]
     Active Substance: OMEPRAZOLE MAGNESIUM
     Route: 048
     Dates: start: 20180813
  14. EPINEPHRINE. [Concomitant]
     Active Substance: EPINEPHRINE
     Dosage: 0.3MG ONCE/SINGLE ADMINISTRATION
     Route: 030
     Dates: start: 20180906, end: 20180906
  15. COMPAZINE [Concomitant]
     Active Substance: PROCHLORPERAZINE MALEATE
     Dosage: 1 TAB BY MOUTH EVERY 6 HOURS AS NEEDED (MIGRAINE)
     Route: 048
     Dates: start: 20180712
  16. TOPROL XL [Suspect]
     Active Substance: METOPROLOL SUCCINATE
     Route: 048
     Dates: start: 20180712
  17. ZANTAC [Concomitant]
     Active Substance: RANITIDINE HYDROCHLORIDE
     Route: 042
     Dates: start: 20180906, end: 20180906
  18. JUNEL FE 1/20 [Concomitant]
     Active Substance: ETHINYL ESTRADIOL\NORETHINDRONE ACETATE
     Dosage: 1.5/30, 28, 1.5 MG-30 RJ1CG
  19. AMBIEN [Concomitant]
     Active Substance: ZOLPIDEM TARTRATE
     Route: 048
     Dates: start: 20180813, end: 20180910
  20. CLARITIN [Concomitant]
     Active Substance: LORATADINE
     Route: 048
  21. PEPCID [Concomitant]
     Active Substance: FAMOTIDINE
     Dosage: 2 ML BY INTRAVENOUS ROUTE ONE TIME ONLY
     Route: 042
     Dates: start: 20180906, end: 20180906
  22. METHYLPREDNISOLONE. [Concomitant]
     Active Substance: METHYLPREDNISOLONE
     Dosage: 125.0MG ONCE/SINGLE ADMINISTRATION
     Route: 030
     Dates: start: 20180906, end: 20180906
  23. GLUCOPHAGE [Concomitant]
     Active Substance: METFORMIN HYDROCHLORIDE
     Route: 048
  24. DELTASONE [Concomitant]
     Active Substance: PREDNISONE
     Dosage: TAKE 4 TAB DAILY X 3 DAYS, THEN 3 TAB X 3 D, 2 X3D, 1 X 3 D
     Route: 048
     Dates: start: 20180806, end: 20180909
  25. BREO ELLIPTA [Concomitant]
     Active Substance: FLUTICASONE FUROATE\VILANTEROL TRIFENATATE
     Dosage: 200-25 MCG/DOSE, 1 PUFF BY INHALATION EVERY MORNING
     Route: 055
     Dates: start: 20180712
  26. PROAIR HFA [Concomitant]
     Active Substance: ALBUTEROL SULFATE
     Indication: DYSPNOEA
     Dosage: TAKE 2 PUFFS BY INHALATION EVERY4 HOURS AS NEEDED
     Route: 055

REACTIONS (7)
  - Loss of consciousness [Unknown]
  - Anaphylactic reaction [Unknown]
  - Dizziness [Unknown]
  - Flushing [Unknown]
  - Dyspnoea [Unknown]
  - Chest discomfort [Unknown]
  - Nausea [Unknown]

NARRATIVE: CASE EVENT DATE: 20180906
